FAERS Safety Report 4564220-8 (Version None)
Quarter: 2005Q1

REPORT INFORMATION
  Report Type: 
  Country: None (occurrence: None)
  Receive Date: 20050128
  Receipt Date: 20050113
  Transmission Date: 20050727
  Serious: Yes (Hospitalization)
  Sender: FDA-Public Use
  Company Number: SE-ROCHE-392258

PATIENT
  Age: 61 Year
  Sex: Male

DRUGS (1)
  1. XELODA [Suspect]
     Indication: DRUG USE FOR UNKNOWN INDICATION
     Dosage: CYCLIC TREATMENT (NOT SPECIFIED).
     Route: 065
     Dates: start: 20040915, end: 20041215

REACTIONS (3)
  - EATING DISORDER [None]
  - ERUCTATION [None]
  - OESOPHAGEAL STENOSIS [None]
